FAERS Safety Report 24318417 (Version 2)
Quarter: 2025Q4

REPORT INFORMATION
  Report Type: Spontaneous
  Country: US (occurrence: US)
  Receive Date: 20240913
  Receipt Date: 20251218
  Transmission Date: 20260118
  Serious: No
  Sender: AMARIN PHARMA, INC.
  Company Number: US-Amarin Pharma  Inc-2024AMR000408

PATIENT
  Age: 77 Year
  Sex: Male

DRUGS (3)
  1. VASCEPA [Suspect]
     Active Substance: ICOSAPENT ETHYL
     Indication: Blood cholesterol increased
  2. VASCEPA [Suspect]
     Active Substance: ICOSAPENT ETHYL
  3. VASCEPA [Suspect]
     Active Substance: ICOSAPENT ETHYL

REACTIONS (3)
  - Poor quality product administered [Unknown]
  - Product physical issue [Unknown]
  - Product odour abnormal [Unknown]
